FAERS Safety Report 5333750-3 (Version None)
Quarter: 2007Q2

REPORT INFORMATION
  Report Type: 
  Country: None (occurrence: None)
  Receive Date: 20070524
  Receipt Date: 20070515
  Transmission Date: 20071010
  Serious: Yes (Hospitalization, Other)
  Sender: FDA-Public Use
  Company Number: FR-ROCHE-497821

PATIENT
  Age: 80 Year
  Sex: Female

DRUGS (6)
  1. LOXEN LP [Suspect]
     Indication: DRUG USE FOR UNKNOWN INDICATION
     Route: 048
  2. NORSET [Suspect]
     Indication: DRUG USE FOR UNKNOWN INDICATION
     Dosage: DOSE RPTD AS 15 MG UID/QD
     Route: 048
  3. PLAVIX [Suspect]
     Indication: DRUG USE FOR UNKNOWN INDICATION
     Dosage: DOSE RPTD AS 75 MG UID/QD.
     Route: 048
     Dates: start: 20060415, end: 20070217
  4. CORDARONE [Suspect]
     Indication: DRUG USE FOR UNKNOWN INDICATION
     Dosage: DOSE RPTD AS 1000 MG WEEKLY
     Route: 048
  5. TORENTAL [Concomitant]
  6. SPECIAFOLDINE [Concomitant]

REACTIONS (7)
  - FALL [None]
  - HEART RATE ABNORMAL [None]
  - HYPOTENSION [None]
  - LOSS OF CONSCIOUSNESS [None]
  - MALAISE [None]
  - SUBARACHNOID HAEMORRHAGE [None]
  - SUBDURAL HAEMORRHAGE [None]
